FAERS Safety Report 20034192 (Version 2)
Quarter: 2021Q4

REPORT INFORMATION
  Report Type: Spontaneous
  Country: CN (occurrence: CN)
  Receive Date: 20211104
  Receipt Date: 20211119
  Transmission Date: 20220303
  Serious: Yes (Hospitalization)
  Sender: FDA-Public Use
  Company Number: CN-009507513-2111CHN000285

PATIENT
  Age: 66 Year
  Sex: Male
  Weight: 60 kg

DRUGS (3)
  1. KEYTRUDA [Suspect]
     Active Substance: PEMBROLIZUMAB
     Indication: Oropharyngeal cancer
     Dosage: 200 MG, EVERY 21 DAYS (ALSO REPORTED AS ONCE DAILY (QD), D1)
     Route: 041
     Dates: start: 20210208, end: 20210304
  2. CARBOPLATIN [Suspect]
     Active Substance: CARBOPLATIN
     Indication: Oropharyngeal cancer
     Dosage: 400 MG, EVERY 21 DAYS
     Route: 041
     Dates: start: 20210209, end: 20210305
  3. PACLITAXEL [Suspect]
     Active Substance: PACLITAXEL
     Indication: Oropharyngeal cancer
     Dosage: 400 MG, EVERY 21 DAYS
     Route: 041
     Dates: start: 20210208, end: 20210304

REACTIONS (2)
  - Immune-mediated dermatitis [Recovered/Resolved]
  - Skin ulcer [Recovered/Resolved]

NARRATIVE: CASE EVENT DATE: 20210324
